FAERS Safety Report 7635098-0 (Version None)
Quarter: 2011Q3

REPORT INFORMATION
  Report Type: 
  Country: None (occurrence: None)
  Receive Date: 20110726
  Receipt Date: 20110713
  Transmission Date: 20111222
  Serious: Yes (Other)
  Sender: FDA-Public Use
  Company Number: US-UCBSA-037250

PATIENT
  Sex: Male

DRUGS (1)
  1. VIMPAT [Suspect]

REACTIONS (1)
  - HALLUCINATION [None]
